FAERS Safety Report 5538133-9 (Version None)
Quarter: 2007Q4

REPORT INFORMATION
  Report Type: 
  Country: None (occurrence: None)
  Receive Date: 20071207
  Receipt Date: 20071126
  Transmission Date: 20080405
  Serious: Yes (Other)
  Sender: FDA-Public Use
  Company Number: BR-GENENTECH-241933

PATIENT
  Age: 57 Year
  Sex: Female

DRUGS (4)
  1. MABTHERA [Suspect]
     Indication: VASCULITIS
     Dosage: 2 G, UNK
     Route: 042
     Dates: start: 20061015
  2. CYCLOPHOSPHAMIDE [Concomitant]
     Indication: LYMPHOMA
     Dosage: 100 MG, QD
     Route: 048
     Dates: start: 20070201
  3. CYCLOPHOSPHAMIDE [Concomitant]
     Dosage: 150 MG, QD
     Route: 048
  4. AZATHIOPRINE [Concomitant]
     Indication: DRUG USE FOR UNKNOWN INDICATION
     Route: 042
     Dates: start: 20050201

REACTIONS (5)
  - BLOOD IMMUNOGLOBULIN G DECREASED [None]
  - HERPES ZOSTER [None]
  - NEPHRITIS [None]
  - OESOPHAGEAL CANDIDIASIS [None]
  - PANCYTOPENIA [None]
